FAERS Safety Report 11895403 (Version 1)
Quarter: 2016Q1

REPORT INFORMATION
  Report Type: Spontaneous
  Country: IT (occurrence: IT)
  Receive Date: 20160107
  Receipt Date: 20160107
  Transmission Date: 20160526
  Serious: Yes (Other)
  Sender: FDA-Public Use
  Company Number: IT-SA-2015SA222741

PATIENT
  Age: 16 Year
  Sex: Female

DRUGS (2)
  1. ACETAZOLAMIDE. [Suspect]
     Active Substance: ACETAZOLAMIDE
     Indication: BENIGN INTRACRANIAL HYPERTENSION
     Route: 065
  2. FUROSEMIDE. [Suspect]
     Active Substance: FUROSEMIDE
     Indication: BENIGN INTRACRANIAL HYPERTENSION
     Route: 065

REACTIONS (10)
  - Tinnitus [Recovered/Resolved]
  - Visual impairment [Recovered/Resolved]
  - Papilloedema [Recovered/Resolved]
  - Therapeutic response decreased [Unknown]
  - Drug ineffective [Unknown]
  - Condition aggravated [Recovered/Resolved]
  - Headache [Recovered/Resolved]
  - Benign intracranial hypertension [Recovered/Resolved]
  - Diplopia [Recovered/Resolved]
  - Empty sella syndrome [Recovered/Resolved]
